FAERS Safety Report 5678310-X (Version None)
Quarter: 2008Q1

REPORT INFORMATION
  Report Type: 
  Country: None (occurrence: None)
  Receive Date: 20080320
  Receipt Date: 20080312
  Transmission Date: 20080703
  Serious: Yes (Other)
  Sender: FDA-Public Use
  Company Number: 2008006220

PATIENT
  Sex: Male

DRUGS (1)
  1. LUBRIDERM SKIN NOURISHING WITH OAT EXTRACT (NO ACTIVE INGREDIENT) [Suspect]
     Indication: DRY SKIN
     Dosage: UNSPECIFIED, TOPICAL
     Route: 061

REACTIONS (3)
  - EYE PAIN [None]
  - EYE SWELLING [None]
  - THERMAL BURN [None]
